FAERS Safety Report 5667289-2 (Version None)
Quarter: 2008Q1

REPORT INFORMATION
  Report Type: 
  Country: None (occurrence: None)
  Receive Date: 20080315
  Receipt Date: 20080116
  Transmission Date: 20080703
  Serious: No
  Sender: FDA-Public Use
  Company Number: US-ABBOTT-08P-163-0434062-00

PATIENT
  Sex: Female
  Weight: 90.8 kg

DRUGS (5)
  1. HUMIRA [Suspect]
     Indication: RHEUMATOID ARTHRITIS
     Route: 058
     Dates: start: 20070712
  2. ATORVASTATIN CALCIUM [Concomitant]
     Indication: BLOOD CHOLESTEROL INCREASED
     Route: 048
  3. CELECOXIB [Concomitant]
     Indication: ARTHRITIS
     Route: 048
  4. LANSOPRAZOLE [Concomitant]
     Indication: BARRETT'S OESOPHAGUS
     Route: 048
  5. FLUTICASONE PROPIONATE [Concomitant]
     Indication: SINUS DISORDER
     Route: 048

REACTIONS (4)
  - DYSURIA [None]
  - POLLAKIURIA [None]
  - SENSATION OF PRESSURE [None]
  - WEIGHT INCREASED [None]
